FAERS Safety Report 8227724-2 (Version None)
Quarter: 2012Q1

REPORT INFORMATION
  Report Type: 
  Country: None (occurrence: None)
  Receive Date: 20120322
  Receipt Date: 20120312
  Transmission Date: 20120608
  Serious: Yes (Other)
  Sender: FDA-Public Use
  Company Number: GB-ABBOTT-12P-167-0917131-00

PATIENT
  Age: 41 Year
  Sex: Male
  Weight: 81 kg

DRUGS (2)
  1. NEBIDO [Concomitant]
     Indication: ANDROGEN DEFICIENCY
     Dosage: 1000 MG/4ML
     Route: 050
     Dates: start: 20110101
  2. TESTOSTERONE [Suspect]
     Indication: ANDROGEN DEFICIENCY
     Route: 062
     Dates: start: 20110501

REACTIONS (4)
  - DRUG INEFFECTIVE [None]
  - MUSCULOSKELETAL DISORDER [None]
  - ASTHENIA [None]
  - CARDIAC FAILURE [None]
